FAERS Safety Report 10077052 (Version 1)
Quarter: 2014Q2

REPORT INFORMATION
  Report Type: Spontaneous
  Country: MY (occurrence: None)
  Receive Date: 20140410
  Receipt Date: 20140410
  Transmission Date: 20141212
  Serious: Yes (Hospitalization, Other)
  Sender: FDA-Public Use
  Company Number: AUR-APL-2014-04289

PATIENT
  Age: 74 Year
  Sex: Male
  Weight: 53 kg

DRUGS (5)
  1. METFORMIN [Suspect]
     Indication: TYPE 2 DIABETES MELLITUS
     Dosage: 1 GM, 2 IN 1 D
  2. GLICLAZIDE (GLICLAZIDE) [Suspect]
     Indication: TYPE 2 DIABETES MELLITUS
     Dosage: 120 MG, 2 IN 1 D
  3. ASPIRIN (ACETYLSALICYLIC ACID) [Concomitant]
  4. VITAMIN B COMPLEX (VITAMIN B COMPLEX) [Concomitant]
  5. PERINDOPRIL (PERINDOPRIL) [Concomitant]

REACTIONS (9)
  - Diarrhoea [None]
  - Pallor [None]
  - Blood pressure increased [None]
  - Anaemia macrocytic [None]
  - Vitamin B12 deficiency [None]
  - Hypoglycaemia [None]
  - Somnolence [None]
  - Unresponsive to stimuli [None]
  - Malabsorption [None]
